APPROVED DRUG PRODUCT: CERUBIDINE
Active Ingredient: DAUNORUBICIN HYDROCHLORIDE
Strength: EQ 20MG BASE/VIAL **Federal Register determination that product was not discontinued or withdrawn for safety or effectiveness reasons**
Dosage Form/Route: INJECTABLE;INJECTION
Application: N050484 | Product #001
Applicant: WYETH AYERST RESEARCH
Approved: Approved Prior to Jan 1, 1982 | RLD: No | RS: No | Type: DISCN